FAERS Safety Report 15517950 (Version 3)
Quarter: 2025Q4

REPORT INFORMATION
  Report Type: Spontaneous
  Country: EU (occurrence: US)
  Receive Date: 20181017
  Receipt Date: 20251027
  Transmission Date: 20260118
  Serious: Yes (Other)
  Sender: MYLAN
  Company Number: EU-002147023-PHHY2018ES005837

PATIENT
  Age: 54 Year
  Sex: Female

DRUGS (16)
  1. VALPROIC ACID [Interacting]
     Active Substance: VALPROIC ACID
     Indication: Product used for unknown indication
     Dosage: 700 MILLIGRAM, QD
  2. VALPROIC ACID [Interacting]
     Active Substance: VALPROIC ACID
     Dosage: 700 MILLIGRAM, QD
     Route: 065
  3. VALPROIC ACID [Interacting]
     Active Substance: VALPROIC ACID
     Dosage: 700 MILLIGRAM, QD
     Route: 065
  4. VALPROIC ACID [Interacting]
     Active Substance: VALPROIC ACID
     Dosage: 700 MILLIGRAM, QD
  5. QUETIAPINE [Interacting]
     Active Substance: QUETIAPINE
     Indication: Depression
     Dosage: 400 MILLIGRAM, QD
  6. QUETIAPINE [Interacting]
     Active Substance: QUETIAPINE
     Dosage: 400 MILLIGRAM, QD
     Route: 065
  7. QUETIAPINE [Interacting]
     Active Substance: QUETIAPINE
     Dosage: 400 MILLIGRAM, QD
     Route: 065
  8. QUETIAPINE [Interacting]
     Active Substance: QUETIAPINE
     Dosage: 400 MILLIGRAM, QD
  9. QUETIAPINE [Interacting]
     Active Substance: QUETIAPINE
     Dosage: 60 MILLIGRAM, QD
  10. QUETIAPINE [Interacting]
     Active Substance: QUETIAPINE
     Dosage: 60 MILLIGRAM, QD
     Route: 065
  11. QUETIAPINE [Interacting]
     Active Substance: QUETIAPINE
     Dosage: 60 MILLIGRAM, QD
  12. QUETIAPINE [Interacting]
     Active Substance: QUETIAPINE
     Dosage: 60 MILLIGRAM, QD
     Route: 065
  13. QUETIAPINE [Interacting]
     Active Substance: QUETIAPINE
     Dosage: 50 MG/DAY TITRATED TO 400 MG/DAY OVER 12 DAYS
     Route: 065
  14. QUETIAPINE [Interacting]
     Active Substance: QUETIAPINE
     Dosage: 50 MG/DAY TITRATED TO 400 MG/DAY OVER 12 DAYS
     Route: 065
  15. QUETIAPINE [Interacting]
     Active Substance: QUETIAPINE
     Dosage: 50 MG/DAY TITRATED TO 400 MG/DAY OVER 12 DAYS
  16. QUETIAPINE [Interacting]
     Active Substance: QUETIAPINE
     Dosage: 50 MG/DAY TITRATED TO 400 MG/DAY OVER 12 DAYS

REACTIONS (7)
  - Physical assault [Unknown]
  - Gait disturbance [Unknown]
  - Speech disorder [Unknown]
  - Pain [Unknown]
  - Depressed level of consciousness [Unknown]
  - Prescribed overdose [Unknown]
  - Drug interaction [Unknown]
